FAERS Safety Report 23395061 (Version 1)
Quarter: 2024Q1

REPORT INFORMATION
  Report Type: Spontaneous
  Country: CA (occurrence: CA)
  Receive Date: 20240112
  Receipt Date: 20240112
  Transmission Date: 20240410
  Serious: Yes (Hospitalization, Other)
  Sender: FDA-Public Use
  Company Number: None

PATIENT
  Age: 9 Year
  Sex: Male

DRUGS (21)
  1. TACROLIMUS [Interacting]
     Active Substance: TACROLIMUS
     Indication: Immunosuppressant drug therapy
     Dosage: UNK
     Route: 065
  2. MOXIFLOXACIN [Interacting]
     Active Substance: MOXIFLOXACIN
     Indication: Evidence based treatment
     Dosage: UNK
     Route: 048
  3. MOXIFLOXACIN [Interacting]
     Active Substance: MOXIFLOXACIN
     Indication: Mycobacterial peritonitis
  4. MOXIFLOXACIN [Interacting]
     Active Substance: MOXIFLOXACIN
     Indication: Mycobacterium fortuitum infection
  5. MOXIFLOXACIN [Interacting]
     Active Substance: MOXIFLOXACIN
     Indication: Moraxella infection
  6. PREDNISONE [Suspect]
     Active Substance: PREDNISONE
     Indication: Immunosuppressant drug therapy
     Dosage: UNK
     Route: 065
  7. SERTRALINE [Interacting]
     Active Substance: SERTRALINE HYDROCHLORIDE
     Indication: Behaviour disorder
     Dosage: UNK
     Route: 065
  8. SERTRALINE [Interacting]
     Active Substance: SERTRALINE HYDROCHLORIDE
     Indication: Anxiety
  9. AMIKACIN [Concomitant]
     Active Substance: AMIKACIN
     Indication: Mycobacterial peritonitis
     Dosage: UNK
     Route: 042
  10. AMIKACIN [Concomitant]
     Active Substance: AMIKACIN
     Indication: Mycobacterium fortuitum infection
  11. AMIKACIN [Concomitant]
     Active Substance: AMIKACIN
     Indication: Moraxella infection
  12. AMIKACIN [Concomitant]
     Active Substance: AMIKACIN
     Indication: Evidence based treatment
  13. ARIPIPRAZOLE [Concomitant]
     Active Substance: ARIPIPRAZOLE
     Indication: Behaviour disorder
     Dosage: UNK
     Route: 065
  14. ARIPIPRAZOLE [Concomitant]
     Active Substance: ARIPIPRAZOLE
     Indication: Anxiety
  15. IMIPENEM [Concomitant]
     Active Substance: IMIPENEM
     Indication: Mycobacterial peritonitis
     Dosage: UNK
     Route: 042
  16. IMIPENEM [Concomitant]
     Active Substance: IMIPENEM
     Indication: Mycobacterium fortuitum infection
  17. IMIPENEM [Concomitant]
     Active Substance: IMIPENEM
     Indication: Moraxella infection
  18. IMIPENEM [Concomitant]
     Active Substance: IMIPENEM
     Indication: Evidence based treatment
  19. METHYLPHENIDATE [Concomitant]
     Active Substance: METHYLPHENIDATE
     Indication: Behaviour disorder
     Dosage: UNK
     Route: 065
  20. METHYLPHENIDATE [Concomitant]
     Active Substance: METHYLPHENIDATE
     Indication: Anxiety
  21. SULFAMETHOXAZOLE\TRIMETHOPRIM [Concomitant]
     Active Substance: SULFAMETHOXAZOLE\TRIMETHOPRIM
     Indication: Mycobacterium fortuitum infection
     Dosage: UNK
     Route: 065

REACTIONS (6)
  - Drug interaction [Unknown]
  - Moraxella infection [Recovered/Resolved]
  - Transplant rejection [Recovered/Resolved]
  - Mycobacterium fortuitum infection [Recovered/Resolved]
  - Mycobacterial peritonitis [Recovered/Resolved]
  - Electrocardiogram QT prolonged [Recovered/Resolved]
